FAERS Safety Report 9416257 (Version 1)
Quarter: 2013Q3

REPORT INFORMATION
  Report Type: Spontaneous
  Country: KR (occurrence: None)
  Receive Date: 20130718
  Receipt Date: 20130718
  Transmission Date: 20140515
  Serious: Yes (Other)
  Sender: FDA-Public Use
  Company Number: SYM-2013-06435

PATIENT
  Sex: Female

DRUGS (5)
  1. FLUOROURACIL (FLUOROURACIL) (FLUOROURACIL) [Suspect]
     Indication: OVARIAN EPITHELIAL CANCER
  2. OXALIPLATIN (OXALIPLATIN) (OXALIPLATIN) [Suspect]
     Indication: OVARIAN EPITHELIAL CANCER
  3. LEUCOVORIN (FOLINIC ACID) (FOLINIC ACID) [Suspect]
     Indication: OVARIAN EPITHELIAL CANCER
  4. PLATINUM COMPOUNDS (PLATINUM COMPOUNDS) [Concomitant]
  5. TAXANES (TAXANES) [Concomitant]

REACTIONS (1)
  - Neuropathy peripheral [None]
